FAERS Safety Report 23589828 (Version 1)
Quarter: 2024Q1

REPORT INFORMATION
  Report Type: Spontaneous
  Country: US (occurrence: None)
  Receive Date: 20240304
  Receipt Date: 20240304
  Transmission Date: 20240409
  Serious: Yes (Hospitalization)
  Sender: FDA-Public Use
  Company Number: US-ROCHE-3518602

PATIENT
  Age: 57 Year
  Sex: Female

DRUGS (2)
  1. ROZLYTREK [Suspect]
     Active Substance: ENTRECTINIB
     Indication: Product used for unknown indication
     Route: 048
     Dates: start: 202304
  2. ROZLYTREK [Suspect]
     Active Substance: ENTRECTINIB
     Route: 048

REACTIONS (3)
  - Tremor [Unknown]
  - Balance disorder [Unknown]
  - Fall [Unknown]

NARRATIVE: CASE EVENT DATE: 20231201
